FAERS Safety Report 4357927-9 (Version None)
Quarter: 2004Q2

REPORT INFORMATION
  Report Type: 
  Country: None (occurrence: None)
  Receive Date: 20040510
  Receipt Date: 20040505
  Transmission Date: 20050107
  Serious: No
  Sender: FDA-Public Use
  Company Number: 2003171603US

PATIENT
  Age: 85 Year
  Sex: Female

DRUGS (2)
  1. LINEZOLID(LINEZOLID) TABLET [Suspect]
     Indication: BURSITIS INFECTIVE STAPHYLOCOCCAL
     Dosage: ORAL
     Route: 048
  2. CITALOPRAM [Suspect]
     Indication: DEPRESSION

REACTIONS (8)
  - ACTIVITIES OF DAILY LIVING IMPAIRED [None]
  - DEPRESSION [None]
  - DIFFICULTY IN WALKING [None]
  - DRUG INTERACTION [None]
  - FEEDING DISORDER [None]
  - MOVEMENT DISORDER [None]
  - SERUM SEROTONIN INCREASED [None]
  - TREMOR [None]
